FAERS Safety Report 5429916-4 (Version None)
Quarter: 2007Q3

REPORT INFORMATION
  Report Type: 
  Country: None (occurrence: None)
  Receive Date: 20070829
  Receipt Date: 20070802
  Transmission Date: 20080115
  Serious: Yes (Hospitalization, Disabling)
  Sender: FDA-Public Use
  Company Number: FR-GILEAD-2007-0012377

PATIENT
  Sex: Male
  Weight: 100 kg

DRUGS (10)
  1. VIREAD [Suspect]
     Indication: HEPATITIS B VIRUS
     Route: 048
     Dates: start: 20021101, end: 20041117
  2. VIREAD [Suspect]
     Route: 048
     Dates: start: 20050314, end: 20050324
  3. VIREAD [Suspect]
     Dates: start: 20070523
  4. EPIVIR [Concomitant]
     Indication: HIV INFECTION
     Route: 048
     Dates: start: 20020101
  5. NORVIR [Concomitant]
     Indication: HIV INFECTION
     Route: 048
     Dates: start: 20020101
  6. TELZIR [Concomitant]
     Indication: HIV INFECTION
     Route: 048
     Dates: start: 20020101
  7. ZIAGEN [Concomitant]
     Indication: HIV INFECTION
     Route: 048
     Dates: start: 20020101
  8. CORENITEC [Concomitant]
     Indication: HYPERTENSION
     Route: 048
  9. HYPERIUM [Concomitant]
     Indication: HYPERTENSION
  10. TENORDATE [Concomitant]
     Indication: HYPERTENSION

REACTIONS (3)
  - FANCONI SYNDROME ACQUIRED [None]
  - HEPATITIS VIRAL [None]
  - RENAL FAILURE ACUTE [None]
